FAERS Safety Report 17054229 (Version 1)
Quarter: 2019Q4

REPORT INFORMATION
  Report Type: Spontaneous
  Country: NL (occurrence: NL)
  Receive Date: 20191120
  Receipt Date: 20191120
  Transmission Date: 20200122
  Serious: Yes (Other)
  Sender: FDA-Public Use
  Company Number: NL-MYLANLABS-2019M1111302

PATIENT
  Age: 82 Year
  Sex: Male
  Weight: 52 kg

DRUGS (13)
  1. CLOZAPINE. [Suspect]
     Active Substance: CLOZAPINE
     Indication: DELUSION
     Dosage: 6 MILLIGRAM, BID
     Route: 048
     Dates: start: 20190802, end: 20190803
  2. PARACETAMOL [Concomitant]
     Active Substance: ACETAMINOPHEN
     Dosage: 1 DOSAGE FORM, ZO NODIG GEBRUIK
     Route: 048
     Dates: start: 20190318
  3. DOXYCYCLINE. [Concomitant]
     Active Substance: DOXYCYCLINE
     Dosage: 1 DOSAGE FORM, QD,EERSTE DAG 2X, DAN 1X 1 STUKS
     Route: 048
     Dates: start: 20190420
  4. DIVISUN [Concomitant]
     Active Substance: CHOLECALCIFEROL
     Dosage: 800 INTERNATIONAL UNIT, QD, 1X DAAGS 1 STUK
     Route: 048
     Dates: start: 20190225
  5. IPRATROPIUM W/SALBUTAMOL [Concomitant]
     Active Substance: ALBUTEROL\IPRATROPIUM
     Dosage: 1 DOSAGE FORM, ZO NODIG GEBRUIK
     Dates: start: 20190412
  6. MOVICOLON [Concomitant]
     Active Substance: POLYETHYLENE GLYCOL 3350\POTASSIUM CHLORIDE\SODIUM BICARBONATE\SODIUM CHLORIDE
     Dosage: 1 DOSAGE FORM, QD, 1X DAAGS 1 STUK
     Route: 048
     Dates: start: 20190225
  7. CIPRAMIL                           /00582602/ [Concomitant]
     Active Substance: CITALOPRAM HYDROBROMIDE
     Dosage: 3 GTT DROPS, QD,1X DAAGS 3 DRUPPELS
     Route: 048
     Dates: start: 20190419
  8. PANTOPRAZOL                        /01263201/ [Concomitant]
     Active Substance: PANTOPRAZOLE
     Dosage: 20 MILLIGRAM,12 HOURS,2X DAAGS 1 STUKS
     Route: 048
     Dates: start: 20190225
  9. CALOGEN NEUTRAL [Concomitant]
     Dosage: 30 MILLILITER, Q8H, 3X DAAGS 30 MILLILITER
     Dates: start: 20190423
  10. LISINOPRIL. [Concomitant]
     Active Substance: LISINOPRIL
     Dosage: 10 MILLIGRAM, QD, 1X DAAGS 1 STUK
     Route: 048
     Dates: start: 20190225
  11. NIZORAL [Concomitant]
     Active Substance: KETOCONAZOLE
     Dosage: 1 DOSAGE FORM,12 HOURS, 2X DAAGS AANBRENGEN
     Route: 003
     Dates: start: 20190726
  12. KETOCONAZOL [Concomitant]
     Active Substance: KETOCONAZOLE
     Dosage: 1 DOSAGE FORM, Q3D,2X PER WEEK AANBRENGEN
     Route: 003
     Dates: start: 20190726
  13. TRIMBOW [Concomitant]
     Active Substance: BECLOMETHASONE DIPROPIONATE\FORMOTEROL FUMARATE\GLYCOPYRROLATE
     Dosage: 1 DOSAGE FORM, 2X DAAGS 1 DOSES
     Dates: start: 20190225

REACTIONS (1)
  - Depressed level of consciousness [Recovered/Resolved]

NARRATIVE: CASE EVENT DATE: 20190803
